FAERS Safety Report 17597646 (Version 1)
Quarter: 2020Q1

REPORT INFORMATION
  Report Type: Spontaneous
  Country: CA (occurrence: CA)
  Receive Date: 20200330
  Receipt Date: 20200330
  Transmission Date: 20200409
  Serious: Yes (Hospitalization, Other)
  Sender: FDA-Public Use
  Company Number: NVSC2020CA085206

PATIENT
  Age: 60 Year
  Sex: Male

DRUGS (1)
  1. SANDOZ BUPROPION SR [Suspect]
     Active Substance: BUPROPION
     Indication: DEPRESSION
     Dosage: 150 MG, QD
     Route: 048

REACTIONS (4)
  - Nausea [Recovering/Resolving]
  - Liver disorder [Recovering/Resolving]
  - Hepatitis [Recovering/Resolving]
  - Vomiting [Recovering/Resolving]
